FAERS Safety Report 8490341-3 (Version None)
Quarter: 2012Q3

REPORT INFORMATION
  Report Type: 
  Country: None (occurrence: None)
  Receive Date: 20120705
  Receipt Date: 20120628
  Transmission Date: 20120928
  Serious: Yes (Death, Other)
  Sender: FDA-Public Use
  Company Number: DE-PFIZER INC-2008150179

PATIENT
  Age: 46 Year
  Sex: Female
  Weight: 73 kg

DRUGS (18)
  1. GENOTROPIN [Suspect]
     Dosage: 0.5 MG, DAILY
     Route: 058
     Dates: start: 20050425
  2. CLINDAMYCIN [Concomitant]
     Indication: SINUSITIS
     Dosage: 300 MG, 1X/DAY
     Dates: start: 20050909, end: 20050909
  3. METHYLPREDNISOLONE [Concomitant]
     Dosage: 40 MG, 1X/DAY
     Dates: start: 20050912, end: 20050913
  4. HYDROCORTISONE [Concomitant]
     Indication: BLOOD CORTICOTROPHIN DECREASED
  5. TRIAMCINOLONE [Concomitant]
     Indication: GRANULOMA ANNULARE
     Dosage: 4 TIMES, AS NEEDED
     Dates: start: 20080215
  6. MINIRIN [Concomitant]
     Indication: BLOOD ANTIDIURETIC HORMONE DECREASED
  7. GENOTROPIN [Suspect]
     Indication: GROWTH HORMONE DEFICIENCY
     Dosage: 0.6 MG, 1X/DAY
     Route: 058
     Dates: start: 20050405
  8. LEVOTHYROXINE SODIUM [Concomitant]
     Indication: PRIMARY HYPOTHYROIDISM
     Dosage: 50 UG, 1X/DAY
     Dates: start: 20040815
  9. METHYLPREDNISOLONE [Concomitant]
     Indication: HYPERSENSITIVITY
     Dosage: 250 MG, 1X/DAY
     Dates: start: 20050909, end: 20050910
  10. CONJUGATED ESTROGENS [Concomitant]
     Indication: HYPOGONADISM
     Dosage: 0.30 MG, 1X/DAY
     Dates: start: 20050315, end: 20050909
  11. METHYLPREDNISOLONE [Concomitant]
     Dosage: 20 MG, 1X/DAY
     Dates: start: 20050914, end: 20050915
  12. MINIRIN [Concomitant]
     Indication: DIABETES INSIPIDUS
     Dosage: 0.10 ML, UNK
     Dates: start: 20040715
  13. HYDROCORTISONE [Concomitant]
     Indication: ADRENAL INSUFFICIENCY
     Dosage: 15 MG, 1X/DAY
     Dates: start: 20040815
  14. LEVOTHYROXINE SODIUM [Concomitant]
     Indication: BLOOD THYROID STIMULATING HORMONE DECREASED
     Dosage: 75 UG, 1X/DAY
     Dates: start: 20050315
  15. METHYLPREDNISOLONE [Concomitant]
     Dosage: 80 MG, 1X/DAY
     Dates: start: 20050911, end: 20050911
  16. METHYLPREDNISOLONE [Concomitant]
     Dosage: 10 MG, 1X/DAY
     Dates: start: 20050916, end: 20050918
  17. CALCIUM [Concomitant]
     Indication: OSTEOPENIA
     Dosage: 1000 MG, 1X/DAY
     Dates: start: 20050916
  18. TRIAMCINOLONE ACETONIDE [Concomitant]
     Indication: GRANULOMA ANNULARE
     Dosage: UNK
     Dates: start: 20070903

REACTIONS (8)
  - PANCREATIC NECROSIS [None]
  - CEREBROVASCULAR ACCIDENT [None]
  - MULTI-ORGAN FAILURE [None]
  - SPLENIC INFARCTION [None]
  - MYOCARDITIS [None]
  - CARDIAC FAILURE [None]
  - INTESTINAL INFARCTION [None]
  - HEPARIN-INDUCED THROMBOCYTOPENIA [None]
